FAERS Safety Report 10227685 (Version 1)
Quarter: 2014Q2

REPORT INFORMATION
  Report Type: Spontaneous
  Country: JP (occurrence: None)
  Receive Date: 20140606
  Receipt Date: 20140606
  Transmission Date: 20141212
  Serious: Yes (Hospitalization)
  Sender: FDA-Public Use
  Company Number: JP-015931

PATIENT
  Age: 90 Year
  Sex: Male

DRUGS (1)
  1. DEGARELIX (GONAX) [Suspect]
     Indication: PROSTATE CANCER
     Dosage: 1X/4WEEKS
     Route: 058

REACTIONS (4)
  - Fall [None]
  - Injection site pain [None]
  - Head injury [None]
  - Gait disturbance [None]
